FAERS Safety Report 9697840 (Version 3)
Quarter: 2013Q4

REPORT INFORMATION
  Report Type: Spontaneous
  Country: US (occurrence: None)
  Receive Date: 20131118
  Receipt Date: 20131211
  Transmission Date: 20140711
  Serious: Yes (Death, Hospitalization)
  Sender: FDA-Public Use
  Company Number: 152089

PATIENT
  Age: 58 Year
  Sex: Male
  Weight: 81 kg

DRUGS (1)
  1. LEUCOVORIN CALCIUM [Suspect]
     Indication: COLORECTAL CANCER METASTATIC
     Dates: start: 20130222

REACTIONS (14)
  - Febrile neutropenia [None]
  - Septic shock [None]
  - Mucosal inflammation [None]
  - Nausea [None]
  - Vomiting [None]
  - Multi-organ failure [None]
  - Blood urea increased [None]
  - Protein total decreased [None]
  - Blood albumin decreased [None]
  - Blood alkaline phosphatase increased [None]
  - Aspartate aminotransferase increased [None]
  - Blood lactate dehydrogenase increased [None]
  - Red blood cell count decreased [None]
  - Disease recurrence [None]
